FAERS Safety Report 9729808 (Version 2)
Quarter: 2013Q4

REPORT INFORMATION
  Report Type: Spontaneous
  Country: US (occurrence: US)
  Receive Date: 20131204
  Receipt Date: 20131204
  Transmission Date: 20140711
  Serious: No
  Sender: FDA-Public Use
  Company Number: US-GILEAD-2009-0020944

PATIENT
  Sex: Male
  Weight: 88.45 kg

DRUGS (14)
  1. LETAIRIS [Suspect]
     Indication: PULMONARY ARTERIAL HYPERTENSION
     Route: 048
     Dates: start: 20090305
  2. COREG CR [Concomitant]
  3. LOVASTATIN [Concomitant]
  4. PRINIVIL [Concomitant]
  5. LASIX [Concomitant]
  6. ALBUTEROL [Concomitant]
  7. ADVAIR 500/50 [Concomitant]
  8. SPIRIVA [Concomitant]
  9. VENTOLIN [Concomitant]
  10. SINGULAIR [Concomitant]
  11. GLUCOPHAGE [Concomitant]
  12. TYLENOL [Concomitant]
  13. PRILOSEC [Concomitant]
  14. PREVACID [Concomitant]

REACTIONS (3)
  - Dyspnoea [Unknown]
  - Nasal congestion [Unknown]
  - Local swelling [Unknown]
